FAERS Safety Report 9200182 (Version 4)
Quarter: 2013Q4

REPORT INFORMATION
  Report Type: Spontaneous
  Country: US (occurrence: US)
  Receive Date: 20130329
  Receipt Date: 20131028
  Transmission Date: 20140711
  Serious: Yes (Other)
  Sender: FDA-Public Use
  Company Number: US-UCBSA-081641

PATIENT
  Age: 18 Year
  Sex: Female
  Weight: 49.6 kg

DRUGS (6)
  1. CIMZIA [Suspect]
     Indication: CROHN^S DISEASE
     Route: 058
     Dates: start: 20130117, end: 201303
  2. CIMZIA [Suspect]
     Indication: CROHN^S DISEASE
     Dates: start: 20130802
  3. 6-MP [Concomitant]
     Indication: CROHN^S DISEASE
     Route: 048
     Dates: end: 201303
  4. 6-MP [Concomitant]
     Indication: CROHN^S DISEASE
     Route: 048
     Dates: start: 20130401
  5. BUDESONIDE [Concomitant]
     Indication: CROHN^S DISEASE
     Route: 048
     Dates: end: 201303
  6. BUDESONIDE [Concomitant]
     Indication: CROHN^S DISEASE
     Route: 048
     Dates: start: 20130401

REACTIONS (2)
  - Herpes zoster [Recovered/Resolved]
  - Inappropriate schedule of drug administration [Unknown]
